FAERS Safety Report 7794647-2 (Version None)
Quarter: 2011Q4

REPORT INFORMATION
  Report Type: 
  Country: None (occurrence: None)
  Receive Date: 20111004
  Receipt Date: 20110929
  Transmission Date: 20120403
  Serious: Yes (Hospitalization)
  Sender: FDA-Public Use
  Company Number: CN-ABBOTT-11P-035-0856397-00

PATIENT
  Age: 22 Year
  Sex: Female

DRUGS (10)
  1. RISPERIDONE [Suspect]
     Route: 048
     Dates: start: 20091111, end: 20091115
  2. HALOPERIDOL [Suspect]
     Indication: SCHIZOPHRENIA
  3. VALPROATE SODIUM [Suspect]
     Route: 048
     Dates: start: 20091116
  4. RISPERIDONE [Suspect]
     Indication: AFFECTIVE DISORDER
     Route: 048
     Dates: start: 20091102
  5. HALOPERIDOL [Suspect]
     Indication: AFFECTIVE DISORDER
     Dosage: DAILY
     Route: 030
     Dates: start: 20091107, end: 20091110
  6. VALPROATE SODIUM [Suspect]
     Indication: SCHIZOPHRENIA
     Route: 048
     Dates: start: 20091101, end: 20091115
  7. VALPROATE SODIUM [Suspect]
     Indication: AFFECTIVE DISORDER
     Route: 048
     Dates: start: 20091102
  8. RISPERIDONE [Suspect]
     Route: 048
     Dates: start: 20091116
  9. TRIHEXYPHENIDYL HCL [Concomitant]
     Indication: PRODUCT USED FOR UNKNOWN INDICATION
     Dates: start: 20091107
  10. RISPERIDONE [Suspect]
     Indication: SCHIZOPHRENIA
     Route: 048
     Dates: end: 20091110

REACTIONS (10)
  - SOMNOLENCE [None]
  - EXTRAPYRAMIDAL DISORDER [None]
  - URINARY INCONTINENCE [None]
  - HYPERTONIA [None]
  - HEART SOUNDS ABNORMAL [None]
  - PUPILS UNEQUAL [None]
  - MOVEMENT DISORDER [None]
  - COMA [None]
  - ALTERED STATE OF CONSCIOUSNESS [None]
  - HYPERREFLEXIA [None]
